FAERS Safety Report 24736360 (Version 1)
Quarter: 2024Q4

REPORT INFORMATION
  Report Type: Report from Study
  Country: GB (occurrence: GB)
  Receive Date: 20241216
  Receipt Date: 20241216
  Transmission Date: 20250114
  Serious: Yes (Other)
  Sender: EMD SERONO INC
  Company Number: GB-Merck Healthcare KGaA-2024060733

PATIENT
  Sex: Female

DRUGS (1)
  1. MAVENCLAD [Suspect]
     Active Substance: CLADRIBINE
     Indication: Multiple sclerosis
     Dosage: YEAR ONE WEEK ONE THERAPY: TWO TABLETS ON DAY 1 AND ONE TABLET ON DAYS 2 TO 5.
     Dates: start: 20241104

REACTIONS (12)
  - Lower respiratory tract infection viral [Unknown]
  - Nasopharyngitis [Recovering/Resolving]
  - Oropharyngeal pain [Recovering/Resolving]
  - Fatigue [Not Recovered/Not Resolved]
  - Headache [Unknown]
  - Bronchiectasis [Unknown]
  - Condition aggravated [Unknown]
  - Lymphocyte count decreased [Unknown]
  - Back pain [Unknown]
  - Asthenia [Recovering/Resolving]
  - Malaise [Unknown]
  - Urinary tract infection [Unknown]
